FAERS Safety Report 9230745 (Version 3)
Quarter: 2013Q4

REPORT INFORMATION
  Report Type: Spontaneous
  Country: GB (occurrence: None)
  Receive Date: 20130411
  Receipt Date: 20131022
  Transmission Date: 20140711
  Serious: Yes (Hospitalization, Other)
  Sender: FDA-Public Use
  Company Number: AUR-APL-2013-02835

PATIENT
  Age: 83 Year
  Sex: Female

DRUGS (8)
  1. AMLODIPINE [Suspect]
     Indication: PRODUCT USED FOR UNKNOWN INDICATION
  2. BISOPROLOL (BISOPROLOL) [Suspect]
     Indication: PRODUCT USED FOR UNKNOWN INDICATION
  3. CITALOPRAM (CITALOPRAM) [Suspect]
     Indication: PRODUCT USED FOR UNKNOWN INDICATION
  4. DOXAZOSIN [Suspect]
     Indication: PRODUCT USED FOR UNKNOWN INDICATION
  5. FUROSEMIDE (FUROSEMIDE) [Suspect]
     Indication: PRODUCT USED FOR UNKNOWN INDICATION
  6. ASPIRIN (ACETYLSALICYLIC ACID) [Suspect]
     Indication: PRODUCT USED FOR UNKNOWN INDICATION
  7. TELMISARTAN [Suspect]
     Indication: PRODUCT USED FOR UNKNOWN INDICATION
  8. ATENOLOL [Suspect]
     Indication: HYPERTENSION
     Dates: start: 201209

REACTIONS (11)
  - Pulmonary congestion [None]
  - Dyspnoea [None]
  - Weight loss poor [None]
  - Low density lipoprotein increased [None]
  - Blood cholesterol increased [None]
  - Fluid overload [None]
  - Oedema [None]
  - Depression [None]
  - Skin disorder [None]
  - Amnesia [None]
  - No therapeutic response [None]
